FAERS Safety Report 9729737 (Version 1)
Quarter: 2013Q4

REPORT INFORMATION
  Report Type: Spontaneous
  Country: US (occurrence: US)
  Receive Date: 20131204
  Receipt Date: 20131204
  Transmission Date: 20140711
  Serious: No
  Sender: FDA-Public Use
  Company Number: US-GILEAD-2009-0021889

PATIENT
  Sex: Female
  Weight: 92.99 kg

DRUGS (12)
  1. LETAIRIS [Suspect]
     Indication: PULMONARY ARTERIAL HYPERTENSION
     Route: 048
     Dates: start: 20081024
  2. OXYGEN [Concomitant]
  3. FUROSEMIDE [Concomitant]
  4. FLUCONAZOLE [Concomitant]
  5. FLUDROCORTISONE [Concomitant]
  6. POTASSIUM CHLORIDE [Concomitant]
  7. NEURONTIN [Concomitant]
  8. MS CONTIN [Concomitant]
  9. PERCOCET [Concomitant]
  10. ASPIRIN [Concomitant]
  11. CALCIUM [Concomitant]
  12. MULTIVITAMINS [Concomitant]

REACTIONS (1)
  - Nasal congestion [Unknown]
